FAERS Safety Report 8339125-7 (Version None)
Quarter: 2012Q2

REPORT INFORMATION
  Report Type: 
  Country: None (occurrence: None)
  Receive Date: 20120507
  Receipt Date: 20120502
  Transmission Date: 20120825
  Serious: No
  Sender: FDA-Public Use
  Company Number: US-PFIZER INC-2012108077

PATIENT
  Sex: Male
  Weight: 83.9 kg

DRUGS (2)
  1. SUTENT [Suspect]
     Indication: RENAL CELL CARCINOMA
     Dosage: 50 MG, (2 X 25MG)
     Dates: start: 20120107, end: 20120101
  2. SUTENT [Suspect]
     Dosage: 25 MG, UNK
     Dates: start: 20120308, end: 20120316

REACTIONS (2)
  - BLISTER [None]
  - GLOSSODYNIA [None]
